FAERS Safety Report 8462808-5 (Version None)
Quarter: 2012Q2

REPORT INFORMATION
  Report Type: 
  Country: None (occurrence: None)
  Receive Date: 20120625
  Receipt Date: 20120615
  Transmission Date: 20120825
  Serious: Yes (Death)
  Sender: FDA-Public Use
  Company Number: US-ROCHE-1034398

PATIENT
  Sex: Female

DRUGS (13)
  1. REGLAN [Concomitant]
     Route: 048
  2. TAXOL [Concomitant]
  3. TAXOTERE [Concomitant]
     Route: 042
  4. ZOFRAN [Concomitant]
     Route: 048
  5. CIPROFLOXACIN HCL [Concomitant]
     Dosage: ON 4/14
     Route: 048
  6. LANTUS [Concomitant]
     Dosage: 100 UNITS/ML
     Route: 058
  7. AVASTIN [Suspect]
     Indication: PRODUCT USED FOR UNKNOWN INDICATION
  8. NEXIUM [Concomitant]
     Route: 048
  9. LASIX [Concomitant]
     Route: 048
  10. LEVOTHYROXINE [Concomitant]
     Route: 048
  11. PROCHLORPERAZINE [Concomitant]
     Route: 048
  12. NOVOLOG [Concomitant]
     Dosage: 100 UNIT/ML
     Route: 058
  13. LEXAPRO [Concomitant]
     Route: 048

REACTIONS (1)
  - BREAST CANCER METASTATIC [None]
